FAERS Safety Report 12329588 (Version 1)
Quarter: 2016Q2

REPORT INFORMATION
  Report Type: Spontaneous
  Country: US (occurrence: US)
  Receive Date: 20160503
  Receipt Date: 20160503
  Transmission Date: 20160815
  Serious: No
  Sender: FDA-Public Use
  Company Number: US-PERRIGO-16US000488

PATIENT
  Age: 53 Year
  Sex: Male
  Weight: 86.17 kg

DRUGS (5)
  1. CETIRIZINE                         /00884302/ [Concomitant]
     Active Substance: CETIRIZINE HYDROCHLORIDE
     Indication: SINUS DISORDER
     Dosage: UNK
     Route: 065
  2. ZOLOFT [Concomitant]
     Active Substance: SERTRALINE HYDROCHLORIDE
     Indication: DEPRESSION
     Dosage: UNK
     Route: 065
     Dates: start: 201507
  3. PREVACID [Concomitant]
     Active Substance: LANSOPRAZOLE
     Indication: GASTROOESOPHAGEAL REFLUX DISEASE
     Dosage: UNK
     Route: 065
  4. VITAMINS NOS [Concomitant]
     Active Substance: VITAMINS
     Indication: SUPPLEMENTATION THERAPY
     Dosage: UNK
     Route: 065
  5. TRIAMCINOLONE ACETONIDE. [Suspect]
     Active Substance: TRIAMCINOLONE ACETONIDE
     Indication: SINUS DISORDER
     Dosage: ONE SPRAY PER NOSTRIL, QD
     Route: 045
     Dates: start: 20160111, end: 20160116

REACTIONS (4)
  - Off label use [Recovered/Resolved]
  - Nasal discomfort [Recovered/Resolved]
  - Headache [Not Recovered/Not Resolved]
  - Drug administered at inappropriate site [Recovered/Resolved]

NARRATIVE: CASE EVENT DATE: 20160111
